FAERS Safety Report 10031744 (Version 2)
Quarter: 2014Q2

REPORT INFORMATION
  Report Type: Spontaneous
  Country: JP (occurrence: JP)
  Receive Date: 20140324
  Receipt Date: 20140408
  Transmission Date: 20141212
  Serious: Yes (Other)
  Sender: FDA-Public Use
  Company Number: JP-TEVA-470119ISR

PATIENT
  Age: 63 Year
  Sex: Male

DRUGS (3)
  1. CISPLATIN [Suspect]
     Indication: OESOPHAGEAL CARCINOMA
  2. 5-FU (FLUOROURACIL) [Suspect]
     Indication: OESOPHAGEAL CARCINOMA
  3. ISOVORIN [Suspect]

REACTIONS (1)
  - Stomatitis [Recovering/Resolving]
